FAERS Safety Report 7907886-4 (Version None)
Quarter: 2011Q4

REPORT INFORMATION
  Report Type: 
  Country: None (occurrence: None)
  Receive Date: 20111110
  Receipt Date: 20111102
  Transmission Date: 20120403
  Serious: Yes (Other)
  Sender: FDA-Public Use
  Company Number: US-US-EMD SERONO, INC.-7087989

PATIENT
  Sex: Female

DRUGS (26)
  1. FLUOXETINE HCL [Concomitant]
  2. LISINOPRIL [Concomitant]
  3. GLUCOSAMINE [Concomitant]
  4. ACETAMINOPHEN AND HYDROCODONE BITARTRATE [Concomitant]
     Indication: PAIN
  5. POT CL MICRO [Concomitant]
  6. MAGNESIUM [Concomitant]
  7. TRAZODONE HCL [Concomitant]
  8. VITAMIN D [Concomitant]
  9. HYOSCYAMINE SUB [Concomitant]
     Route: 060
  10. ASPIRIN [Concomitant]
  11. ASCORBIC ACID [Concomitant]
  12. FISH OIL [Concomitant]
  13. REBIF [Suspect]
     Indication: MULTIPLE SCLEROSIS
     Route: 058
     Dates: start: 20040828
  14. TIZANIDINE HCL [Concomitant]
  15. BACLOFEN [Concomitant]
     Indication: MUSCLE SPASMS
  16. LOPERAMINDE [Concomitant]
  17. NAPROXEN [Concomitant]
     Indication: PAIN
  18. GABAPENTIN [Concomitant]
  19. SIMVASTATIN [Concomitant]
  20. METFORMIN HCL [Concomitant]
  21. MULTI-VITAMIN [Concomitant]
  22. VITAMIN B COMPLEX CAP [Concomitant]
  23. CALCIUM [Concomitant]
  24. FENOFIBRIATE [Concomitant]
  25. DETROL [Concomitant]
  26. FUROSEMIDE [Concomitant]
     Indication: JOINT SWELLING

REACTIONS (8)
  - TYPE 2 DIABETES MELLITUS [None]
  - BALANCE DISORDER [None]
  - MUSCLE SPASMS [None]
  - BLOOD IRON DECREASED [None]
  - INJECTION SITE DISCOMFORT [None]
  - GAIT DISTURBANCE [None]
  - INJECTION SITE ERYTHEMA [None]
  - FATIGUE [None]
